FAERS Safety Report 14385557 (Version 2)
Quarter: 2021Q1

REPORT INFORMATION
  Report Type: Spontaneous
  Country: US (occurrence: US)
  Receive Date: 20180115
  Receipt Date: 20210316
  Transmission Date: 20210419
  Serious: Yes (Other)
  Sender: FDA-Public Use
  Company Number: US-SA-2016SA234115

PATIENT
  Age: 45 Year
  Sex: Female
  Weight: 107.05 kg

DRUGS (11)
  1. LEXAPRO [Concomitant]
     Active Substance: ESCITALOPRAM OXALATE
     Dosage: UNK
     Dates: start: 2000
  2. NYSTATIN. [Concomitant]
     Active Substance: NYSTATIN
     Dosage: UNK
     Dates: start: 2000
  3. IMITREX [Concomitant]
     Active Substance: SUMATRIPTAN SUCCINATE
     Dosage: UNK
     Dates: start: 2000
  4. TAXOTERE [Suspect]
     Active Substance: DOCETAXEL
     Indication: BREAST CANCER FEMALE
     Dosage: 202 MG, QOW
     Route: 065
     Dates: start: 20051025, end: 20051025
  5. ESOMEPRAZOLE. [Concomitant]
     Active Substance: ESOMEPRAZOLE MAGNESIUM
     Dosage: UNK
     Dates: start: 2000
  6. TAXOTERE [Suspect]
     Active Substance: DOCETAXEL
     Dosage: 202 MG, QOW
     Route: 065
     Dates: start: 20051206, end: 20051206
  7. WELLBUTRIN [Concomitant]
     Active Substance: BUPROPION HYDROCHLORIDE
     Dosage: UNK
     Dates: start: 2000
  8. AVAPRO [Concomitant]
     Active Substance: IRBESARTAN
     Dosage: UNK
     Dates: start: 2000
  9. HYDROCODONE [Concomitant]
     Active Substance: HYDROCODONE
     Dosage: UNK
     Dates: start: 2000
  10. HEMOCYTE [Concomitant]
     Dosage: UNK
     Dates: start: 2000
  11. ECONAZOLE NITRATE. [Concomitant]
     Active Substance: ECONAZOLE NITRATE
     Dosage: UNK
     Dates: start: 2000

REACTIONS (5)
  - Alopecia [Not Recovered/Not Resolved]
  - Anxiety [Unknown]
  - Pain [Unknown]
  - Emotional distress [Unknown]
  - Impaired quality of life [Unknown]

NARRATIVE: CASE EVENT DATE: 200511
